FAERS Safety Report 16088268 (Version 1)
Quarter: 2019Q1

REPORT INFORMATION
  Report Type: Spontaneous
  Country: GB (occurrence: GB)
  Receive Date: 20190319
  Receipt Date: 20190319
  Transmission Date: 20190418
  Serious: Yes (Other)
  Sender: FDA-Public Use
  Company Number: GB-SA-2019SA068440

PATIENT
  Age: 71 Year
  Sex: Male
  Weight: 110.67 kg

DRUGS (5)
  1. ENOXAPARIN SODIUM. [Suspect]
     Active Substance: ENOXAPARIN SODIUM
     Indication: THROMBOSIS
     Dosage: 40MG/0.4ML
     Route: 051
     Dates: start: 20190117
  2. OMEPRAZOLE. [Concomitant]
     Active Substance: OMEPRAZOLE
  3. ALLOPURINOL. [Concomitant]
     Active Substance: ALLOPURINOL
  4. LOSARTAN. [Concomitant]
     Active Substance: LOSARTAN
  5. AMILORIDE [Concomitant]
     Active Substance: AMILORIDE

REACTIONS (2)
  - Frequent bowel movements [Not Recovered/Not Resolved]
  - Urinary incontinence [Not Recovered/Not Resolved]

NARRATIVE: CASE EVENT DATE: 20190120
